FAERS Safety Report 13760369 (Version 3)
Quarter: 2017Q3

REPORT INFORMATION
  Report Type: Report from Study
  Country: FR (occurrence: FR)
  Receive Date: 20170717
  Receipt Date: 20170724
  Transmission Date: 20171127
  Serious: Yes (Other)
  Sender: FDA-Public Use
  Company Number: PHHY2017FR066759

PATIENT
  Age: 46 Year
  Sex: Female

DRUGS (5)
  1. NEFOPAM [Concomitant]
     Active Substance: NEFOPAM
     Indication: PAIN
     Dosage: 20 MG/M2, QD
     Route: 048
     Dates: start: 20170303
  2. INNOHEP [Concomitant]
     Active Substance: TINZAPARIN SODIUM
     Indication: BLOOD VISCOSITY ABNORMAL
     Dosage: 10000 IU, QD
     Route: 058
     Dates: start: 20170303
  3. ZARZIO [Suspect]
     Active Substance: FILGRASTIM
     Indication: NEUTROPENIA
     Dosage: 30000 IU, QD
     Route: 058
     Dates: start: 20170331, end: 20170410
  4. PANTOPRAZOLE [Concomitant]
     Active Substance: PANTOPRAZOLE
     Indication: GASTROINTESTINAL MOTILITY DISORDER
     Dosage: 1 DF, QD
     Route: 048
     Dates: start: 20170303
  5. PARACETAMOL [Concomitant]
     Active Substance: ACETAMINOPHEN
     Indication: PAIN
     Dosage: 1 G, TID
     Route: 048
     Dates: start: 20170303

REACTIONS (1)
  - Neutropenia [Recovered/Resolved]

NARRATIVE: CASE EVENT DATE: 20170406
